FAERS Safety Report 14773354 (Version 3)
Quarter: 2018Q2

REPORT INFORMATION
  Report Type: Spontaneous
  Country: LB (occurrence: LB)
  Receive Date: 20180418
  Receipt Date: 20180502
  Transmission Date: 20180711
  Serious: Yes (Death, Other)
  Sender: FDA-Public Use
  Company Number: LB-ROCHE-2108434

PATIENT
  Age: 60 Year
  Sex: Male
  Weight: 80 kg

DRUGS (11)
  1. PPI (PANTOPRAZOLE SODIUM) [Concomitant]
     Route: 048
     Dates: start: 201801
  2. MABTHERA [Suspect]
     Active Substance: RITUXIMAB
     Indication: VASCULITIS
  3. NITRENDIPINE [Concomitant]
     Active Substance: NITRENDIPINE
     Indication: HYPERTENSION
     Route: 065
  4. FEBUXOSTAT. [Concomitant]
     Active Substance: FEBUXOSTAT
     Indication: HYPERURICAEMIA
  5. METHYLPREDNISOLONE. [Concomitant]
     Active Substance: METHYLPREDNISOLONE
     Route: 042
  6. SOLU-CORTEF [Concomitant]
     Active Substance: HYDROCORTISONE SODIUM SUCCINATE
     Route: 065
  7. PARACETAMOL [Concomitant]
     Active Substance: ACETAMINOPHEN
  8. MABTHERA [Suspect]
     Active Substance: RITUXIMAB
     Indication: GLOMERULONEPHRITIS RAPIDLY PROGRESSIVE
     Dosage: IV INFUSION OVER 5 HOURS
     Route: 042
     Dates: start: 20180327, end: 20180410
  9. LISOPRESS [Concomitant]
     Active Substance: LISINOPRIL
     Route: 048
     Dates: start: 201801
  10. OMEPRAZOL [Concomitant]
     Active Substance: OMEPRAZOLE
     Route: 065
  11. PREDNISOLONE. [Concomitant]
     Active Substance: PREDNISOLONE
     Route: 048
     Dates: start: 20180330

REACTIONS (20)
  - Renal disorder [Unknown]
  - Pleuritic pain [Recovering/Resolving]
  - Pulmonary oedema [Unknown]
  - Sinus tachycardia [Unknown]
  - Pleural effusion [Unknown]
  - Pain in extremity [Unknown]
  - Back pain [Unknown]
  - Dyspnoea [Unknown]
  - Hypoxia [Unknown]
  - Pericardial effusion [Unknown]
  - Glomerular filtration rate decreased [Unknown]
  - Death [Fatal]
  - Bradycardia [Unknown]
  - Cardiac arrest [Unknown]
  - Pulmonary congestion [Unknown]
  - Troponin increased [Unknown]
  - Paraesthesia [Recovered/Resolved]
  - Musculoskeletal pain [Unknown]
  - Chest pain [Unknown]
  - Hypotension [Unknown]
